FAERS Safety Report 22650840 (Version 1)
Quarter: 2023Q2

REPORT INFORMATION
  Report Type: Spontaneous
  Country: US (occurrence: None)
  Receive Date: 20230627
  Receipt Date: 20230627
  Transmission Date: 20230722
  Serious: Yes (Life-Threatening, Other)
  Sender: FDA-Public Use
  Company Number: None

PATIENT
  Age: 50 Year
  Sex: Female
  Weight: 61 kg

DRUGS (2)
  1. CEFTRIAXONE [Suspect]
     Active Substance: CEFTRIAXONE
     Indication: Urinary tract infection
     Dosage: 1 G GRAM  ONE TIME ED DOSE  INTRAVENOUS BOLUS?
     Route: 040
     Dates: start: 20230626, end: 20230626
  2. SALINE FLUSH 10 ML [Concomitant]
     Dates: start: 20230626, end: 20230626

REACTIONS (2)
  - Pruritus [None]
  - Anaphylactic reaction [None]

NARRATIVE: CASE EVENT DATE: 20230626
